FAERS Safety Report 7669760-0 (Version None)
Quarter: 2011Q3

REPORT INFORMATION
  Report Type: 
  Country: None (occurrence: None)
  Receive Date: 20110808
  Receipt Date: 20110725
  Transmission Date: 20111222
  Serious: No
  Sender: FDA-Public Use
  Company Number: US-B.I. PHARMACEUTICALS,INC./RIDGEFIELD-2011-BP-13253BP

PATIENT
  Age: 88 Year
  Sex: Male
  Weight: 76.66 kg

DRUGS (6)
  1. PRAVASTATIN [Concomitant]
     Dates: start: 20050101
  2. METOPROLOL TARTRATE [Concomitant]
     Dates: start: 20050101
  3. ZOLPIDEM [Concomitant]
     Dates: start: 20090101
  4. MULTI-VITAMINS [Concomitant]
  5. PRADAXA [Suspect]
     Dosage: 300 MG
     Dates: start: 20110120, end: 20110516
  6. LORATADINE [Concomitant]
     Route: 042
     Dates: start: 20080101

REACTIONS (1)
  - DIZZINESS [None]
